FAERS Safety Report 26096175 (Version 1)
Quarter: 2025Q4

REPORT INFORMATION
  Report Type: Spontaneous
  Country: EU (occurrence: EU)
  Receive Date: 20251127
  Receipt Date: 20251127
  Transmission Date: 20260117
  Serious: Yes (Other)
  Sender: TAKEDA
  Company Number: EU-GSKCCFEMEA-Case-02717229_AE-104996

PATIENT
  Age: 74 Year

DRUGS (5)
  1. BORTEZOMIB [Suspect]
     Active Substance: BORTEZOMIB
     Indication: Product used for unknown indication
     Dosage: UNK UNK, Q4WEEKS
  2. BORTEZOMIB [Suspect]
     Active Substance: BORTEZOMIB
     Dosage: UNK UNK, Q4WEEKS
  3. BLENREP [Suspect]
     Active Substance: BELANTAMAB MAFODOTIN-BLMF
     Indication: Product used for unknown indication
     Dosage: UNK UNK, Q4WEEKS
     Dates: start: 202505
  4. BLENREP [Suspect]
     Active Substance: BELANTAMAB MAFODOTIN-BLMF
     Dosage: 1.9 MILLIGRAM/KILOGRAM, Q4WEEKS
  5. ZOLEDRONIC ACID [Concomitant]
     Active Substance: ZOLEDRONIC ACID
     Indication: Product used for unknown indication
     Dosage: UNK

REACTIONS (5)
  - Thrombocytopenia [Unknown]
  - Diabetes mellitus [Unknown]
  - Disease recurrence [Unknown]
  - Keratopathy [Unknown]
  - Visual acuity reduced [Unknown]
